FAERS Safety Report 15501177 (Version 1)
Quarter: 2018Q4

REPORT INFORMATION
  Report Type: Report from Study
  Country: US (occurrence: US)
  Receive Date: 20181015
  Receipt Date: 20181015
  Transmission Date: 20190205
  Serious: Yes (Hospitalization, Other)
  Sender: FDA-Public Use
  Company Number: US-SHIRE-US201839534

PATIENT
  Sex: Female

DRUGS (1)
  1. GATTEX [Suspect]
     Active Substance: TEDUGLUTIDE\WATER
     Indication: SHORT-BOWEL SYNDROME
     Dosage: 3.5 MG, 1X/DAY:QD
     Route: 058
     Dates: start: 20180509

REACTIONS (3)
  - Cardiac failure congestive [Unknown]
  - Hypophagia [Unknown]
  - Diarrhoea [Unknown]
